FAERS Safety Report 4722848-6 (Version None)
Quarter: 2005Q3

REPORT INFORMATION
  Report Type: 
  Country: None (occurrence: None)
  Receive Date: 20050722
  Receipt Date: 20050630
  Transmission Date: 20060218
  Serious: Yes (Hospitalization)
  Sender: FDA-Public Use
  Company Number: 211-007

PATIENT
  Age: 60 Year
  Sex: Female

DRUGS (3)
  1. TOPOTECAN HCL [Suspect]
     Indication: OVARIAN CANCER
     Dosage: 1.2MGM2 PER DAY
     Route: 042
     Dates: start: 20050614, end: 20050618
  2. WARFARIN SODIUM [Concomitant]
  3. ZOPICLONE [Concomitant]

REACTIONS (10)
  - ANOREXIA [None]
  - COUGH [None]
  - GROIN PAIN [None]
  - INTERSTITIAL LUNG DISEASE [None]
  - MALIGNANT NEOPLASM PROGRESSION [None]
  - NEUTROPHIL COUNT DECREASED [None]
  - OEDEMA PERIPHERAL [None]
  - PULMONARY EMBOLISM [None]
  - PYREXIA [None]
  - WHITE BLOOD CELL COUNT ABNORMAL [None]
